FAERS Safety Report 16753175 (Version 9)
Quarter: 2020Q4

REPORT INFORMATION
  Report Type: Report from Study
  Country: IL (occurrence: IL)
  Receive Date: 20190829
  Receipt Date: 20201001
  Transmission Date: 20210113
  Serious: Yes (Hospitalization, Disabling)
  Sender: FDA-Public Use
  Company Number: IL-ROCHE-2382250

PATIENT
  Age: 67 Year
  Sex: Male
  Weight: 77.1 kg

DRUGS (22)
  1. NEXIUM [Concomitant]
     Active Substance: ESOMEPRAZOLE MAGNESIUM
     Dates: start: 20190812, end: 20190815
  2. OPTALGIN [Concomitant]
     Active Substance: METAMIZOLE
     Indication: PAIN
     Dates: start: 20190715, end: 20190715
  3. ATEZOLIZUMAB. [Suspect]
     Active Substance: ATEZOLIZUMAB
     Indication: NON-SMALL CELL LUNG CANCER
     Dosage: DATE OF MOST RECENT DOSE OF ATEZOLIZUMAB PRIOR TO SAE ONSET: 25/JUL/2019.
     Route: 041
     Dates: start: 20190515
  4. CARBOPLATIN. [Suspect]
     Active Substance: CARBOPLATIN
     Indication: NON-SMALL CELL LUNG CANCER
     Dosage: MOST RECENT DOSE OF CARBOPLATIN OF 550 MG PRIOR TO SAE ONSET ON 25/JUL/2019?AUC OF 6 MG/ML/MIN ADMIN
     Route: 042
     Dates: start: 20190515
  5. LIPITOR [Concomitant]
     Active Substance: ATORVASTATIN CALCIUM
     Indication: HYPERLIPIDAEMIA
     Route: 048
     Dates: start: 20190106
  6. OPTALGIN [Concomitant]
     Active Substance: METAMIZOLE
     Indication: PYREXIA
     Dates: start: 20190812, end: 20190812
  7. AKYNZEO [Concomitant]
     Active Substance: NETUPITANT\PALONOSETRON HYDROCHLORIDE
     Dates: start: 20190725, end: 20190725
  8. NAB-PACLITAXEL [Suspect]
     Active Substance: PACLITAXEL
     Indication: NON-SMALL CELL LUNG CANCER
     Dosage: MOST RECENT DOSE OF 195 MG PRIOR TO EVENT ONSET ON 31/JUL/2019?100 MG/M2 WILL BE ADMINISTRED INTRAVE
     Route: 042
     Dates: start: 20190515
  9. NEXIUM [Concomitant]
     Active Substance: ESOMEPRAZOLE MAGNESIUM
     Indication: DYSPEPSIA
     Dates: start: 20190716
  10. PAPAVERINE [Concomitant]
     Active Substance: PAPAVERINE
     Indication: PAIN
     Dates: start: 20190715, end: 20190715
  11. NORMAL SALINE [Concomitant]
     Active Substance: SODIUM CHLORIDE
     Indication: DIARRHOEA
     Dates: start: 20190715, end: 20190716
  12. ASPIRIN. [Concomitant]
     Active Substance: ASPIRIN
     Indication: PYREXIA
     Dates: start: 20190812, end: 20190812
  13. DEXACORT [Concomitant]
     Active Substance: DEXAMETHASONE SODIUM PHOSPHATE
     Route: 042
     Dates: start: 20190725, end: 20190725
  14. XATRAL [Concomitant]
     Active Substance: ALFUZOSIN
     Indication: URINARY RETENTION
     Dates: start: 20190716
  15. MICROPIRIN [Concomitant]
     Active Substance: ASPIRIN
     Indication: CEREBROVASCULAR ACCIDENT
     Route: 048
     Dates: start: 20190106
  16. AEROVENT (ISRAEL) [Concomitant]
     Indication: DYSPNOEA
     Dates: start: 20190703
  17. STOPIT [Concomitant]
     Indication: DIARRHOEA
     Dates: start: 20190715, end: 20190715
  18. NYSTATIN. [Concomitant]
     Active Substance: NYSTATIN
  19. DEXTROSE 5% [Concomitant]
     Active Substance: DEXTROSE
     Indication: BLOOD CREATININE INCREASED
     Dates: start: 20190807, end: 20190807
  20. ZOFRAN [Concomitant]
     Active Substance: ONDANSETRON HYDROCHLORIDE
     Indication: VOMITING
     Dates: start: 20190711, end: 20190715
  21. TAZOCIN [Concomitant]
     Active Substance: PIPERACILLIN SODIUM\TAZOBACTAM SODIUM
     Indication: PYREXIA
     Dates: start: 20190812, end: 20190816
  22. ALFUZOSIN [Concomitant]
     Active Substance: ALFUZOSIN
     Indication: NEPHROLITHIASIS
     Route: 048
     Dates: start: 20190312

REACTIONS (2)
  - Duodenal ulcer haemorrhage [Recovered/Resolved]
  - Pancytopenia [Recovered/Resolved]

NARRATIVE: CASE EVENT DATE: 20190812
